FAERS Safety Report 14506565 (Version 3)
Quarter: 2022Q2

REPORT INFORMATION
  Report Type: Report from Study
  Country: US (occurrence: US)
  Receive Date: 20180208
  Receipt Date: 20220623
  Transmission Date: 20220721
  Serious: Yes (Other)
  Sender: FDA-Public Use
  Company Number: US-UCBSA-2018002658

PATIENT
  Age: 0 Year
  Sex: Male

DRUGS (19)
  1. CERTOLIZUMAB PEGOL [Suspect]
     Active Substance: CERTOLIZUMAB PEGOL
     Indication: Crohn^s disease
     Dosage: 200 MG, 2X/MONTH
     Route: 064
     Dates: start: 20140722, end: 20150415
  2. BOOSTRIX [Concomitant]
     Active Substance: TETANUS TOXOID, REDUCED DIPHTHERIA TOXOID AND ACELLULAR PERTUSSIS VACCINE, ADSORBED ANTIGENS
     Indication: Immunisation
     Dosage: 1 DF, TOTAL
     Dates: start: 20150310, end: 20150310
  3. Fish oil w/vitamin d nos [Concomitant]
     Indication: Product used for unknown indication
     Dosage: 1 DF, 2X/WEEK
     Route: 048
     Dates: start: 20140708, end: 20150415
  4. ACYCLOVIR [Concomitant]
     Active Substance: ACYCLOVIR
     Indication: Product used for unknown indication
     Dosage: 4.5 DF, ONCE DAILY (QD)
     Route: 048
     Dates: start: 20140916, end: 20141010
  5. FLUARIX NOS [Concomitant]
     Active Substance: INFLUENZA VIRUS VACCINE
     Indication: Product used for unknown indication
     Dosage: 1 DF, TOTAL
     Dates: start: 20141014, end: 20141014
  6. OXYCODONE [Concomitant]
     Active Substance: OXYCODONE
     Indication: Product used for unknown indication
     Dosage: 1 DF, 2X/DAY (BID)
     Route: 048
     Dates: start: 20140917, end: 20140918
  7. VITAMINS [Concomitant]
     Active Substance: VITAMINS
     Indication: Product used for unknown indication
     Dosage: 1 DF, ONCE DAILY (QD)
     Route: 048
     Dates: start: 20140708, end: 20150415
  8. PROBIOTICS NOS [Concomitant]
     Active Substance: PROBIOTICS NOS
     Indication: Product used for unknown indication
     Dosage: UNK
     Route: 048
     Dates: start: 20140708, end: 20150415
  9. PROGESTERONE [Concomitant]
     Active Substance: PROGESTERONE
     Indication: Infertility
     Dosage: 600 MG, ONCE DAILY (QD)
     Dates: start: 20140719, end: 20140920
  10. GREEN TEA LEAF [Concomitant]
     Active Substance: GREEN TEA LEAF
     Indication: Product used for unknown indication
     Dosage: UNK, ONCE DAILY (QD)
     Route: 048
     Dates: start: 20140708, end: 20150415
  11. TUMS [Concomitant]
     Active Substance: CALCIUM CARBONATE
     Indication: Dyspepsia
     Dosage: UNK
     Route: 048
     Dates: start: 20150109, end: 20150330
  12. TYLENOL EXTRA STRENGTH [Concomitant]
     Active Substance: ACETAMINOPHEN
     Indication: Headache
     Dosage: 1 DF, 2X/DAY (BID)
     Route: 048
     Dates: start: 20140708, end: 20140909
  13. TYLENOL EXTRA STRENGTH [Concomitant]
     Active Substance: ACETAMINOPHEN
     Dosage: 1 DF, AS NEEDED (PRN) (500 MG)
     Route: 048
     Dates: start: 20150109, end: 20150415
  14. UNISOM SLEEPTABS [Concomitant]
     Active Substance: DOXYLAMINE SUCCINATE
     Indication: Sleep disorder
     Dosage: 1 DF, 3X/DAY (TID)
     Route: 048
     Dates: start: 20150109, end: 20150330
  15. ZOFRAN [Concomitant]
     Active Substance: ONDANSETRON HYDROCHLORIDE
     Indication: Nausea
     Dosage: 1 DF, 3X/DAY (TID)
     Route: 048
     Dates: start: 20140917, end: 20140919
  16. ZITHROMAX [Concomitant]
     Active Substance: AZITHROMYCIN DIHYDRATE
     Indication: Nasopharyngitis
     Dosage: 1 DF, ONCE DAILY (QD)
     Route: 048
     Dates: start: 20150408, end: 20150410
  17. ZITHROMAX [Concomitant]
     Active Substance: AZITHROMYCIN DIHYDRATE
     Indication: Sinusitis
  18. UNSPECIFIED INGREDIENT [Concomitant]
     Active Substance: UNSPECIFIED INGREDIENT
     Indication: Herpes zoster
     Dosage: 1 PG, ONCE DAILY (QD)
     Route: 061
     Dates: start: 20141007, end: 20141010
  19. ESTROGEN NOS [Concomitant]
     Active Substance: ESTROGENS
     Indication: Infertility
     Dosage: UNK, 2X/WEEK
     Route: 061
     Dates: start: 20140701, end: 20140920

REACTIONS (4)
  - Speech disorder developmental [Unknown]
  - Autism spectrum disorder [Unknown]
  - Maternal exposure before pregnancy [Unknown]
  - Maternal exposure during pregnancy [Unknown]

NARRATIVE: CASE EVENT DATE: 20140722
